FAERS Safety Report 9767434 (Version 3)
Quarter: 2014Q2

REPORT INFORMATION
  Report Type: Spontaneous
  Country: US (occurrence: US)
  Receive Date: 20131217
  Receipt Date: 20140501
  Transmission Date: 20141212
  Serious: Yes (Hospitalization, Other)
  Sender: FDA-Public Use
  Company Number: US-ACTAVIS-2013-22661

PATIENT
  Sex: Female
  Weight: 50 kg

DRUGS (8)
  1. NORCO 10/325 (WATSON LABORATORIES) [Suspect]
     Indication: PRODUCT USED FOR UNKNOWN INDICATION
     Dosage: UNK, Q4H
     Route: 065
  2. GABAPENTIN (AELLC) [Suspect]
     Indication: FIBROMYALGIA
     Dosage: 600 MG, UNK
     Route: 065
     Dates: start: 2005, end: 201211
  3. MORPHINE SULFATE (AELLC) [Suspect]
     Indication: PRODUCT USED FOR UNKNOWN INDICATION
     Dosage: 30 MG, UNK
     Route: 065
  4. MORPHINE SULFATE (AELLC) [Suspect]
     Dosage: 15 MG, UNK
     Route: 065
  5. VICODIN [Suspect]
     Indication: FIBROMYALGIA
     Dosage: 5/500MG
     Route: 065
  6. VICODIN [Suspect]
     Dosage: 5/500MG
     Route: 065
     Dates: start: 2001, end: 201108
  7. KEFLEX                             /00145501/ [Suspect]
     Indication: PRODUCT USED FOR UNKNOWN INDICATION
     Route: 065
  8. XANAX [Concomitant]
     Indication: ANXIETY
     Dosage: 0.25 MG, BID

REACTIONS (9)
  - Hip fracture [Unknown]
  - Upper limb fracture [Unknown]
  - Road traffic accident [Unknown]
  - Pain [Unknown]
  - Osteomyelitis [Unknown]
  - Drug ineffective [Unknown]
  - Drug hypersensitivity [Unknown]
  - Surgery [Unknown]
  - Condition aggravated [Unknown]
